FAERS Safety Report 8021414-7 (Version None)
Quarter: 2012Q1

REPORT INFORMATION
  Report Type: 
  Country: None (occurrence: None)
  Receive Date: 20120104
  Receipt Date: 20111226
  Transmission Date: 20120608
  Serious: Yes (Hospitalization, Other)
  Sender: FDA-Public Use
  Company Number: US-BAYER-2011-031831

PATIENT
  Age: 24 Year
  Sex: Female
  Weight: 63.492 kg

DRUGS (2)
  1. YAZ [Suspect]
     Dosage: UNK
     Dates: start: 20040101, end: 20071201
  2. YAZ [Suspect]
     Dosage: UNK
     Dates: start: 20090301, end: 20090501

REACTIONS (3)
  - GALLBLADDER DISORDER [None]
  - CHOLELITHIASIS [None]
  - CHOLECYSTITIS ACUTE [None]
